FAERS Safety Report 14006691 (Version 3)
Quarter: 2017Q4

REPORT INFORMATION
  Report Type: Report from Study
  Country: CA (occurrence: CA)
  Receive Date: 20170925
  Receipt Date: 20171212
  Transmission Date: 20180321
  Serious: Yes (Other)
  Sender: FDA-Public Use
  Company Number: CA-UCBSA-2017035492

PATIENT
  Age: 44 Year
  Sex: Female
  Weight: 70 kg

DRUGS (5)
  1. PANTOPRAZOLE [Concomitant]
     Active Substance: PANTOPRAZOLE
     Indication: EOSINOPHILIC OESOPHAGITIS
     Dosage: 40 MG DAILY DOSE
     Dates: start: 201703
  2. AMITRIPTYLINE [Concomitant]
     Active Substance: AMITRIPTYLINE
     Indication: EOSINOPHILIC OESOPHAGITIS
     Dosage: 5 MG DAILY DOSE
     Dates: start: 201703
  3. CERTOLIZUMAB PEGOL ASP [Suspect]
     Active Substance: CERTOLIZUMAB PEGOL
     Indication: ANKYLOSING SPONDYLITIS
     Dosage: 400 MG, EV 2 WEEKS(QOW)
     Route: 058
     Dates: start: 20170901, end: 20170915
  4. SUCRALFATE. [Concomitant]
     Active Substance: SUCRALFATE
     Indication: EOSINOPHILIC OESOPHAGITIS
     Dosage: 1 G, 2X/DAY (BID)
     Dates: start: 201703
  5. ENTOCORT [Concomitant]
     Active Substance: BUDESONIDE
     Indication: CROHN^S DISEASE
     Dosage: 9 MG DAILY DOSE
     Dates: start: 20170916

REACTIONS (8)
  - Deep vein thrombosis [Unknown]
  - Body temperature increased [Unknown]
  - Pruritus [Unknown]
  - Erythema [Recovered/Resolved]
  - Rash vesicular [Recovered/Resolved]
  - Rash [Recovered/Resolved]
  - Flushing [Recovered/Resolved]
  - Bursitis [Recovered/Resolved]

NARRATIVE: CASE EVENT DATE: 201709
